FAERS Safety Report 4927817-9 (Version None)
Quarter: 2006Q1

REPORT INFORMATION
  Report Type: 
  Country: None (occurrence: None)
  Receive Date: 20060228
  Receipt Date: 20060126
  Transmission Date: 20060701
  Serious: Yes (Hospitalization)
  Sender: FDA-Public Use
  Company Number: US-BRISTOL-MYERS SQUIBB COMPANY-13284732

PATIENT
  Age: 44 Year
  Sex: Male
  Weight: 70 kg

DRUGS (4)
  1. ERBITUX [Suspect]
     Indication: HYPOPHARYNGEAL CANCER
     Route: 041
     Dates: start: 20060111, end: 20060111
  2. CARBOPLATIN [Suspect]
     Indication: HYPOPHARYNGEAL CANCER
  3. TAXOL [Suspect]
     Indication: HYPOPHARYNGEAL CANCER
  4. RADIATION THERAPY [Suspect]
     Indication: HYPOPHARYNGEAL CANCER

REACTIONS (2)
  - CHILLS [None]
  - PYREXIA [None]
